FAERS Safety Report 18222379 (Version 1)
Quarter: 2020Q3

REPORT INFORMATION
  Report Type: Spontaneous
  Country: US (occurrence: US)
  Receive Date: 20200902
  Receipt Date: 20200902
  Transmission Date: 20201103
  Serious: Yes (Hospitalization)
  Sender: FDA-Public Use
  Company Number: None

PATIENT
  Age: 12 Year
  Sex: Male
  Weight: 41.5 kg

DRUGS (6)
  1. VINCRISTINE SULFATE 8 MG [Suspect]
     Active Substance: VINCRISTINE SULFATE
     Dates: end: 20200820
  2. CYTARABINE?70 MG [Suspect]
     Active Substance: CYTARABINE
     Dates: end: 20200729
  3. DAUNORUBICIN?140 MG [Suspect]
     Active Substance: DAUNORUBICIN HYDROCHLORIDE
     Dates: end: 20200820
  4. ONCASPAR [Suspect]
     Active Substance: PEGASPARGASE
     Dates: end: 20200801
  5. METHOTREXATE?15 MG [Suspect]
     Active Substance: METHOTREXATE
     Dates: end: 20200805
  6. PREDNISONE. [Suspect]
     Active Substance: PREDNISONE
     Dates: end: 20200826

REACTIONS (22)
  - Confusional state [None]
  - Delirium [None]
  - Metabolic disorder [None]
  - Moaning [None]
  - Psychotic disorder [None]
  - Streptococcus test positive [None]
  - Nervousness [None]
  - Encephalitis [None]
  - Staphylococcal infection [None]
  - Meningitis [None]
  - Hypoglycaemia [None]
  - Hyponatraemia [None]
  - Agitation [None]
  - Stridor [None]
  - Mental status changes [None]
  - Hallucination, visual [None]
  - Hypoalbuminaemia [None]
  - Tachycardia [None]
  - Sensory disturbance [None]
  - Aggression [None]
  - Disease progression [None]
  - Encephalopathy [None]

NARRATIVE: CASE EVENT DATE: 20200825
